FAERS Safety Report 5229080-0 (Version None)
Quarter: 2007Q1

REPORT INFORMATION
  Report Type: 
  Country: None (occurrence: None)
  Receive Date: 20061201
  Receipt Date: 20060814
  Transmission Date: 20070707
  Serious: No
  Sender: FDA-Public Use
  Company Number: US200608003101

PATIENT
  Age: 57 Year
  Sex: Female

DRUGS (5)
  1. CYMBALTA [Suspect]
     Indication: FIBROMYALGIA
     Dosage: SEE IMAGE
     Route: 048
     Dates: start: 20060501, end: 20060101
  2. CYMBALTA [Suspect]
     Indication: FIBROMYALGIA
     Dosage: SEE IMAGE
     Route: 048
     Dates: start: 20060101
  3. ASPIRIN [Concomitant]
  4. ESTROGENS SOL/INJ [Concomitant]
  5. TOPROL-XL [Concomitant]

REACTIONS (3)
  - CONTUSION [None]
  - ECCHYMOSIS [None]
  - HAEMATOMA [None]
